FAERS Safety Report 6715591-5 (Version None)
Quarter: 2010Q2

REPORT INFORMATION
  Report Type: 
  Country: None (occurrence: None)
  Receive Date: 20100506
  Receipt Date: 20100506
  Transmission Date: 20101027
  Serious: Yes (Disabling, Other)
  Sender: FDA-Public Use
  Company Number: None

PATIENT
  Age: 49 Year
  Sex: Male
  Weight: 66.7 kg

DRUGS (13)
  1. AMIKACIN [Suspect]
     Indication: INFECTION
     Dosage: 800MG X 2 DOSES POST HD IV
     Route: 042
     Dates: start: 20100116, end: 20100120
  2. IMIPENEM [Concomitant]
  3. AZITHROMYCIN [Concomitant]
  4. AMPHOTERICIN B [Concomitant]
  5. HEPARIN [Concomitant]
  6. METRONIDAZOLE [Concomitant]
  7. ATOVAQUONE [Concomitant]
  8. ESCITALOPRAM [Concomitant]
  9. BACLOFEN [Concomitant]
  10. LEVOTHYROXINE SODIUM [Concomitant]
  11. PREDNISONE [Concomitant]
  12. TACROLIMUS [Concomitant]
  13. MONTELUKAST SODIUM [Concomitant]

REACTIONS (4)
  - DEAFNESS [None]
  - DEPRESSED LEVEL OF CONSCIOUSNESS [None]
  - DRUG LEVEL INCREASED [None]
  - SEPSIS [None]
